FAERS Safety Report 23285573 (Version 1)
Quarter: 2023Q4

REPORT INFORMATION
  Report Type: Spontaneous
  Country: US (occurrence: None)
  Receive Date: 20231211
  Receipt Date: 20231211
  Transmission Date: 20240109
  Serious: No
  Sender: FDA-Public Use
  Company Number: None

PATIENT
  Age: 26 Year
  Sex: Male

DRUGS (1)
  1. APRETUDE [Suspect]
     Active Substance: CABOTEGRAVIR\CABOTEGRAVIR SODIUM
     Indication: Prophylaxis against HIV infection
     Dosage: OTHER FREQUENCY : EVERY 2 MONTH;?
     Route: 028
     Dates: start: 20230803, end: 20231019

REACTIONS (2)
  - Injection site pain [None]
  - Therapy cessation [None]

NARRATIVE: CASE EVENT DATE: 20231019
